FAERS Safety Report 4359173-1 (Version None)
Quarter: 2004Q2

REPORT INFORMATION
  Report Type: 
  Country: None (occurrence: None)
  Receive Date: 20040517
  Receipt Date: 20040517
  Transmission Date: 20050107
  Serious: Yes (Hospitalization)
  Sender: FDA-Public Use
  Company Number: None

PATIENT
  Age: 88 Year
  Sex: Male

DRUGS (7)
  1. CLONIDINE HCL [Suspect]
     Indication: HYPERTENSION
  2. ATENOLOL [Suspect]
     Dosage: 50 MG QD
     Dates: start: 20030901
  3. NIFEDIPINE [Suspect]
     Dosage: 60 MG QD
     Dates: start: 20030901
  4. ASPIRIN [Concomitant]
  5. SALSALATE [Concomitant]
  6. ACIPHEX [Concomitant]
  7. SEVELAMER [Concomitant]

REACTIONS (1)
  - DIZZINESS [None]
